FAERS Safety Report 20988822 (Version 1)
Quarter: 2022Q2

REPORT INFORMATION
  Report Type: Spontaneous
  Country: GB (occurrence: GB)
  Receive Date: 20220621
  Receipt Date: 20220621
  Transmission Date: 20220721
  Serious: Yes (Other)
  Sender: FDA-Public Use
  Company Number: GB-UCBSA-2022033990

PATIENT
  Sex: Male

DRUGS (2)
  1. KEPPRA [Suspect]
     Active Substance: LEVETIRACETAM
     Indication: Epilepsy
     Dosage: UNK
     Dates: end: 2020
  2. PARALDEHYDE [Concomitant]
     Active Substance: PARALDEHYDE
     Indication: Apnoea
     Dosage: UNK

REACTIONS (1)
  - Epilepsy [Recovering/Resolving]
